FAERS Safety Report 8918886 (Version 1)
Quarter: 2012Q4

REPORT INFORMATION
  Report Type: Spontaneous
  Country: US (occurrence: None)
  Receive Date: 20121115
  Receipt Date: 20121115
  Transmission Date: 20130627
  Serious: Yes (Hospitalization)
  Sender: FDA-Public Use
  Company Number: None

PATIENT
  Age: 71 Year
  Sex: Female
  Weight: 54.89 kg

DRUGS (2)
  1. POTASSIUM [Suspect]
     Indication: HEART FAILURE
     Route: 048
     Dates: start: 20121017, end: 20121109
  2. LISINOPRIL [Suspect]
     Indication: HEART FAILURE
     Route: 048
     Dates: start: 20121017, end: 20121109

REACTIONS (5)
  - Drug interaction [None]
  - Renal failure [None]
  - Hypotension [None]
  - Blood potassium increased [None]
  - Haemorrhage [None]
